FAERS Safety Report 5239081-4 (Version None)
Quarter: 2007Q1

REPORT INFORMATION
  Report Type: 
  Country: None (occurrence: None)
  Receive Date: 20070209
  Receipt Date: 20070129
  Transmission Date: 20070707
  Serious: Yes (Hospitalization)
  Sender: FDA-Public Use
  Company Number: OMPQ-NO-0702S-0066

PATIENT
  Age: 44 Year
  Sex: Male

DRUGS (1)
  1. OMNIPAQUE 140 [Suspect]
     Indication: ABDOMINAL PAIN
     Dosage: 100 ML, SINGLE DOSE, I.V.
     Route: 042
     Dates: start: 20070113, end: 20070113

REACTIONS (4)
  - DISCOMFORT [None]
  - OPTIC NEUROPATHY [None]
  - SUDDEN HEARING LOSS [None]
  - VISUAL ACUITY REDUCED [None]
